FAERS Safety Report 22122357 (Version 1)
Quarter: 2023Q1

REPORT INFORMATION
  Report Type: Spontaneous
  Country: US (occurrence: US)
  Receive Date: 20230321
  Receipt Date: 20230321
  Transmission Date: 20230418
  Serious: Yes (Other)
  Sender: FDA-Public Use
  Company Number: US-BAYER-2023A033352

PATIENT
  Age: 61 Year
  Sex: Male
  Weight: 59.456 kg

DRUGS (6)
  1. STIVARGA [Suspect]
     Active Substance: REGORAFENIB
  2. STIVARGA [Suspect]
     Active Substance: REGORAFENIB
     Dosage: 40 MG, QD
  3. LONSURF [Suspect]
     Active Substance: TIPIRACIL HYDROCHLORIDE\TRIFLURIDINE
     Indication: Colon cancer
     Dosage: 45 MG, BID
     Route: 048
  4. LONSURF [Suspect]
     Active Substance: TIPIRACIL HYDROCHLORIDE\TRIFLURIDINE
     Indication: Colon cancer
     Dosage: 40 MG, BID
     Route: 048
  5. CAPECITABINE [Concomitant]
     Active Substance: CAPECITABINE
  6. OMEPRAZOLE [Concomitant]
     Active Substance: OMEPRAZOLE
     Dosage: UNK

REACTIONS (7)
  - Neoplasm malignant [Unknown]
  - Neutropenia [Unknown]
  - Gait inability [None]
  - White blood cell count decreased [Unknown]
  - Pain in extremity [Recovering/Resolving]
  - Muscle spasms [None]
  - Somnolence [None]

NARRATIVE: CASE EVENT DATE: 20220923
